FAERS Safety Report 10547922 (Version 1)
Quarter: 2014Q4

REPORT INFORMATION
  Report Type: Spontaneous
  Country: US (occurrence: None)
  Receive Date: 20141027
  Receipt Date: 20141027
  Transmission Date: 20150529
  Serious: Yes (Death)
  Sender: FDA-Public Use
  Company Number: None

PATIENT
  Age: 51 Year
  Sex: Female
  Weight: 52.16 kg

DRUGS (1)
  1. ZOCOR [Suspect]
     Active Substance: SIMVASTATIN
     Indication: DEPRESSION
     Dosage: 50 MG DAILY ONCE DAILY TAKEN BY MOUTH
     Route: 048
     Dates: start: 20130715, end: 20140515

REACTIONS (8)
  - Memory impairment [None]
  - Depression [None]
  - Glioblastoma [None]
  - Vomiting [None]
  - Feeling abnormal [None]
  - Somnolence [None]
  - Crying [None]
  - Brain death [None]

NARRATIVE: CASE EVENT DATE: 20140917
